FAERS Safety Report 8296577-9 (Version None)
Quarter: 2012Q2

REPORT INFORMATION
  Report Type: 
  Country: None (occurrence: None)
  Receive Date: 20120418
  Receipt Date: 20120410
  Transmission Date: 20120825
  Serious: Yes (Hospitalization)
  Sender: FDA-Public Use
  Company Number: CO-ELI_LILLY_AND_COMPANY-CO201203006982

PATIENT
  Age: 54 Year
  Sex: Female

DRUGS (10)
  1. CARBAMAZEPINE [Concomitant]
     Dosage: UNK
  2. ACETAMINOPHEN [Concomitant]
     Dosage: UNK, UNKNOWN
  3. FERROUS SULFATE TAB [Concomitant]
     Dosage: UNK
  4. APIDRA [Concomitant]
     Dosage: UNK, UNKNOWN
  5. LANTUS [Concomitant]
     Dosage: UNK, UNKNOWN
  6. ATORVASTATIN [Concomitant]
     Dosage: UNK
  7. BYETTA [Suspect]
     Indication: TYPE 2 DIABETES MELLITUS
     Dosage: 10 UG, BID
     Route: 058
     Dates: start: 20120210, end: 20120223
  8. BYETTA [Suspect]
     Dosage: 5 UG, QD
     Dates: start: 20120224
  9. RANITIDINE [Concomitant]
     Dosage: UNK, UNKNOWN
  10. LOSARTAN POTASSIUM [Concomitant]
     Dosage: UNK, UNKNOWN

REACTIONS (9)
  - DIARRHOEA [None]
  - VOMITING [None]
  - DEPRESSED MOOD [None]
  - BRONCHITIS [None]
  - TREMOR [None]
  - HEADACHE [None]
  - NAUSEA [None]
  - OFF LABEL USE [None]
  - BLOOD GLUCOSE INCREASED [None]
